FAERS Safety Report 23643136 (Version 1)
Quarter: 2024Q1

REPORT INFORMATION
  Report Type: Spontaneous
  Country: US (occurrence: None)
  Receive Date: 20240315
  Receipt Date: 20240315
  Transmission Date: 20240410
  Serious: Yes (Life-Threatening, Hospitalization, Disabling, Other)
  Sender: FDA-Public Use
  Company Number: None

PATIENT
  Age: 8 Year
  Sex: Male

DRUGS (1)
  1. LEVETIRACETAM [Suspect]
     Active Substance: LEVETIRACETAM
     Indication: Epilepsy
     Dosage: FREQUENCY : TWICE A DAY;?
     Route: 048
     Dates: start: 20240312

REACTIONS (9)
  - Loss of consciousness [None]
  - Patient elopement [None]
  - Speech disorder [None]
  - Feeling abnormal [None]
  - Seizure [None]
  - Tremor [None]
  - Unresponsive to stimuli [None]
  - Product use issue [None]
  - Epilepsy [None]

NARRATIVE: CASE EVENT DATE: 20240313
